FAERS Safety Report 7189937-0 (Version None)
Quarter: 2010Q4

REPORT INFORMATION
  Report Type: 
  Country: None (occurrence: None)
  Receive Date: 20101223
  Receipt Date: 20101209
  Transmission Date: 20110411
  Serious: Yes (Other)
  Sender: FDA-Public Use
  Company Number: US-RANBAXY-2010RR-40587

PATIENT
  Sex: Male

DRUGS (10)
  1. CIPROFLOXACIN [Suspect]
     Indication: INFECTION
     Dosage: UNK
     Dates: start: 20050101
  2. LEVAQUIN [Suspect]
     Indication: SINUSITIS
     Dosage: 500 MG, QD
     Route: 048
     Dates: start: 20050215
  3. LEVAQUIN [Suspect]
     Indication: INFECTION
     Dosage: 500 MG, QD
     Dates: start: 20050509
  4. LEVAQUIN [Suspect]
     Dosage: 500 MG, QD
     Dates: start: 20051105
  5. LEVAQUIN [Suspect]
     Dosage: 500 MG, QD
     Dates: start: 20051219
  6. LEVAQUIN [Suspect]
     Dosage: 500 MG, QD
     Dates: start: 20060101
  7. LEVAQUIN [Suspect]
     Dosage: 500 MG, QD
     Dates: start: 20071109
  8. LEVAQUIN [Suspect]
     Dosage: 500 MG, QD
     Dates: start: 20080305
  9. LEVAQUIN [Suspect]
     Dosage: 500 MG, QD
     Dates: start: 20081030
  10. PROZAC [Concomitant]
     Indication: DEPRESSION
     Dosage: UNK
     Dates: start: 20000101

REACTIONS (6)
  - ARTHRITIS [None]
  - BURSITIS [None]
  - EPICONDYLITIS [None]
  - MUSCLE RUPTURE [None]
  - ROTATOR CUFF SYNDROME [None]
  - TENDONITIS [None]
